FAERS Safety Report 5523004-4 (Version None)
Quarter: 2007Q4

REPORT INFORMATION
  Report Type: 
  Country: None (occurrence: None)
  Receive Date: 20071116
  Receipt Date: 20071106
  Transmission Date: 20080405
  Serious: Yes (Hospitalization)
  Sender: FDA-Public Use
  Company Number: 2007BI016899

PATIENT
  Age: 59 Year
  Sex: Female

DRUGS (1)
  1. AVONEX [Suspect]
     Indication: MULTIPLE SCLEROSIS
     Dosage: 30 UG; QW; IM
     Route: 030
     Dates: start: 20011011

REACTIONS (8)
  - BLOOD POTASSIUM ABNORMAL [None]
  - DIZZINESS [None]
  - EXCORIATION [None]
  - FALL [None]
  - FOOT FRACTURE [None]
  - HYPOTENSION [None]
  - URINARY TRACT INFECTION [None]
  - WRIST FRACTURE [None]
